FAERS Safety Report 6192679-1 (Version None)
Quarter: 2009Q2

REPORT INFORMATION
  Report Type: 
  Country: None (occurrence: None)
  Receive Date: 20090518
  Receipt Date: 20090504
  Transmission Date: 20091009
  Serious: Yes (Hospitalization, Other)
  Sender: FDA-Public Use
  Company Number: FI-ROCHE-595837

PATIENT
  Sex: Female

DRUGS (8)
  1. XELODA [Suspect]
     Dosage: DOSAGE REGIMEN: 4+3/DAY
     Route: 048
     Dates: start: 20081029, end: 20081102
  2. AVASTIN [Suspect]
     Route: 042
     Dates: start: 20081029, end: 20081029
  3. ELOXATIN [Concomitant]
     Route: 042
     Dates: start: 20081029, end: 20081029
  4. DIUREX [Concomitant]
     Indication: HYPERTENSION
     Dosage: DOSAGE REGIMEN: 1 X 1
     Route: 048
  5. PRIMASPAN [Concomitant]
     Dosage: INDICATION: BLOOD CIRCULATION FORMULATION: GASTROINTESTINAL TBL DOSAGE REGIMEN: 100 MG X 1
     Route: 048
  6. TENOX [Concomitant]
     Indication: INSOMNIA
     Route: 048
  7. SOMAC [Concomitant]
     Indication: PROPHYLAXIS
     Route: 048
  8. BISOPROLOL [Concomitant]
     Indication: HYPERTENSION
     Dosage: NAME: ORLOC (BISOPROLOL)

REACTIONS (4)
  - ANGINA PECTORIS [None]
  - ARTERIOSPASM CORONARY [None]
  - ELECTROCARDIOGRAM QT SHORTENED [None]
  - METASTASES TO LYMPH NODES [None]
